FAERS Safety Report 12156656 (Version 1)
Quarter: 2016Q1

REPORT INFORMATION
  Report Type: Spontaneous
  Country: US (occurrence: US)
  Receive Date: 20160307
  Receipt Date: 20160307
  Transmission Date: 20160526
  Serious: Yes (Other)
  Sender: FDA-Public Use
  Company Number: US-AKORN PHARMACEUTICALS-2016AKN00135

PATIENT
  Age: 18 Year
  Sex: Female

DRUGS (2)
  1. MYORISAN [Suspect]
     Active Substance: ISOTRETINOIN
     Indication: ACNE CYSTIC
     Dosage: 20 MG, 2X/DAY
     Route: 048
     Dates: start: 20160121, end: 20160224
  2. CLOBETASOL [Concomitant]
     Active Substance: CLOBETASOL
     Indication: ECZEMA

REACTIONS (7)
  - Eczema [Not Recovered/Not Resolved]
  - Mood altered [Recovering/Resolving]
  - Depression [Recovering/Resolving]
  - Arthralgia [Not Recovered/Not Resolved]
  - Suicidal ideation [Recovering/Resolving]
  - Headache [Unknown]
  - Myalgia [Not Recovered/Not Resolved]

NARRATIVE: CASE EVENT DATE: 20160207
